FAERS Safety Report 10910515 (Version 1)
Quarter: 2015Q1

REPORT INFORMATION
  Report Type: Spontaneous
  Country: US (occurrence: US)
  Receive Date: 20150312
  Receipt Date: 20150312
  Transmission Date: 20150721
  Serious: No
  Sender: FDA-Public Use
  Company Number: US-SA-2014SA130594

PATIENT
  Sex: Male

DRUGS (1)
  1. NASACORT ALLERGY 24HR [Suspect]
     Active Substance: TRIAMCINOLONE ACETONIDE
     Dosage: NORMALLY USES THE NASACORT IN THE MORNING,YESTERDAY HE FORGOT SO HE TOOK IT LAST NIGHT AT BEDTIME
     Route: 065

REACTIONS (2)
  - Inappropriate schedule of drug administration [Unknown]
  - Blood glucose decreased [Recovered/Resolved]
